FAERS Safety Report 8760825 (Version 4)
Quarter: 2012Q4

REPORT INFORMATION
  Report Type: 
  Country: BR (occurrence: BR)
  Receive Date: 20120830
  Receipt Date: 20121009
  Transmission Date: 20130627
  Serious: No
  Sender: FDA-Public Use
  Company Number: BR-JNJFOC-20120811972

PATIENT
  Age: 7 None
  Sex: Female

DRUGS (2)
  1. HALDOL [Suspect]
     Indication: SCHIZOPHRENIA
     Dosage: 5 mg
     Route: 048
  2. UNKNOWN MEDICATION [Concomitant]
     Route: 065

REACTIONS (1)
  - Drug prescribing error [Not Recovered/Not Resolved]
